FAERS Safety Report 19645276 (Version 2)
Quarter: 2021Q3

REPORT INFORMATION
  Report Type: Report from Study
  Country: ES (occurrence: ES)
  Receive Date: 20210802
  Receipt Date: 20210826
  Transmission Date: 20211014
  Serious: Yes (Life-Threatening, Hospitalization)
  Sender: FDA-Public Use
  Company Number: ES-ROCHE-2876229

PATIENT
  Age: 58 Year
  Sex: Female
  Weight: 58.5 kg

DRUGS (8)
  1. CARBOPLATIN. [Suspect]
     Active Substance: CARBOPLATIN
     Indication: NON-SMALL CELL LUNG CANCER
     Dosage: DATE OF LAST ADMINISTRATION BEFORE SAE :21/MAY/2021?AUC 5 EVERY 3 WEEKS FOR 4?6 CYCLES
     Route: 042
     Dates: start: 20210319
  2. PREDNISONE. [Concomitant]
     Active Substance: PREDNISONE
  3. ATEZOLIZUMAB. [Suspect]
     Active Substance: ATEZOLIZUMAB
     Indication: NON-SMALL CELL LUNG CANCER
     Dosage: DATE OF LAST ADMIN. BEFORE SAE:02/JUL/2021 ON DAY ONE OF EVERY 3?WEEK (3 DAYS) CYCLE
     Route: 042
     Dates: start: 20210319
  4. TINZAPARINE SODIQUE [Concomitant]
     Active Substance: TINZAPARIN SODIUM
  5. BEVACIZUMAB. [Suspect]
     Active Substance: BEVACIZUMAB
     Indication: NON-SMALL CELL LUNG CANCER
     Dosage: DATE OF LAST ADMINISTRATION BEFORE SAE:02/JUL/2021
     Route: 042
     Dates: start: 20210319
  6. BEMIPARIN [Concomitant]
     Active Substance: BEMIPARIN
  7. FUROSEMIDE. [Concomitant]
     Active Substance: FUROSEMIDE
  8. PACLITAXEL. [Suspect]
     Active Substance: PACLITAXEL
     Indication: NON-SMALL CELL LUNG CANCER
     Dosage: DATE OF LAST ADMINISTRATION BEFORE SAE:21/MAY/2021?175?200 MG/M2 (AT THE INVESTIGATORS^ DISCRETION),
     Route: 042
     Dates: start: 20210319

REACTIONS (2)
  - Nephrotic syndrome [Recovered/Resolved]
  - Renal disorder [Not Recovered/Not Resolved]

NARRATIVE: CASE EVENT DATE: 20210715
